FAERS Safety Report 22784011 (Version 3)
Quarter: 2024Q4

REPORT INFORMATION
  Report Type: Report from Study
  Country: US (occurrence: US)
  Receive Date: 20230803
  Receipt Date: 20241018
  Transmission Date: 20250114
  Serious: No
  Sender: NOVARTIS
  Company Number: US-002147023-NVSC2023US170077

PATIENT
  Sex: Female
  Weight: 68.04 kg

DRUGS (1)
  1. ENTRESTO [Suspect]
     Active Substance: SACUBITRIL\VALSARTAN
     Indication: Cardiac failure chronic
     Dosage: 1 DOSAGE FORM, BID
     Route: 048
     Dates: start: 20160105

REACTIONS (5)
  - Visual impairment [Recovering/Resolving]
  - Atrioventricular block [Unknown]
  - Heart valve incompetence [Unknown]
  - Ejection fraction abnormal [Recovering/Resolving]
  - Blood pressure abnormal [Unknown]
